FAERS Safety Report 11065643 (Version 2)
Quarter: 2015Q2

REPORT INFORMATION
  Report Type: Spontaneous
  Country: US (occurrence: US)
  Receive Date: 20150425
  Receipt Date: 20150524
  Transmission Date: 20150821
  Serious: No
  Sender: FDA-Public Use
  Company Number: US-JNJFOC-20150322806

PATIENT
  Sex: Female
  Weight: 68.04 kg

DRUGS (1)
  1. SANDOZ FENTANYL MATRIX TRANSDERMAL SYSTEM [Suspect]
     Active Substance: FENTANYL
     Indication: FIBROMYALGIA
     Route: 062

REACTIONS (2)
  - Skin ulcer [Not Recovered/Not Resolved]
  - Impaired healing [Not Recovered/Not Resolved]
